FAERS Safety Report 4262951-0 (Version None)
Quarter: 2004Q1

REPORT INFORMATION
  Report Type: 
  Country: None (occurrence: None)
  Receive Date: 20040102
  Receipt Date: 20040102
  Transmission Date: 20041129
  Serious: Yes (Life-Threatening)
  Sender: FDA-Public Use
  Company Number: None

PATIENT
  Age: 43 Year
  Sex: Male
  Weight: 94 kg

DRUGS (20)
  1. GABAPENTIN [Suspect]
     Indication: NEUROPATHIC PAIN
     Dosage: 4200MG QD IN 3 DO ORAL
     Route: 048
     Dates: start: 20030916, end: 20030919
  2. METHADONE HCL [Suspect]
     Indication: PAIN
     Dosage: 5MG TID ORAL
     Route: 048
     Dates: start: 20030909, end: 20030909
  3. GABAPENTIN [Concomitant]
  4. RANITIDINE [Concomitant]
  5. NEFAZODONE HCL [Concomitant]
  6. RISPERDONE [Concomitant]
  7. PAROXETINE [Concomitant]
  8. DIAZEPAM [Concomitant]
  9. TIZANIDINE HCL [Concomitant]
  10. BETA-INTERFERON [Concomitant]
  11. MODAFINIL [Concomitant]
  12. METHADONE HCL [Concomitant]
  13. ZOLPIDEM TARTRATE [Concomitant]
  14. IBUPROFEN [Concomitant]
  15. BACLOFEN [Concomitant]
  16. ZINC SULFATE [Concomitant]
  17. VIT E [Concomitant]
  18. VIT C [Concomitant]
  19. DOCUSATE [Concomitant]
  20. MILK OF MAGNESIA TAB [Concomitant]

REACTIONS (2)
  - DEPRESSED LEVEL OF CONSCIOUSNESS [None]
  - RESPIRATORY DEPRESSION [None]
